FAERS Safety Report 13138641 (Version 1)
Quarter: 2017Q1

REPORT INFORMATION
  Report Type: Spontaneous
  Country: US (occurrence: US)
  Receive Date: 20170123
  Receipt Date: 20170123
  Transmission Date: 20170428
  Serious: No
  Sender: FDA-Public Use
  Company Number: US-UNITED THERAPEUTICS-UNT-2016-012484

PATIENT
  Sex: Female

DRUGS (1)
  1. REMODULIN [Suspect]
     Active Substance: TREPROSTINIL
     Indication: PRODUCT USED FOR UNKNOWN INDICATION
     Dosage: 0.051 ?G/KG, CONTINUING
     Route: 058
     Dates: start: 20150320

REACTIONS (3)
  - Malabsorption from application site [Recovered/Resolved]
  - Infusion site induration [Unknown]
  - Disease progression [Unknown]

NARRATIVE: CASE EVENT DATE: 201608
